FAERS Safety Report 9101571 (Version 1)
Quarter: 2013Q1

REPORT INFORMATION
  Report Type: Spontaneous
  Country: CH (occurrence: CH)
  Receive Date: 20130218
  Receipt Date: 20130218
  Transmission Date: 20140127
  Serious: Yes (Hospitalization)
  Sender: FDA-Public Use
  Company Number: CH-JNJFOC-20130204110

PATIENT
  Age: 80 Year
  Sex: Male
  Weight: 86 kg

DRUGS (5)
  1. XARELTO [Suspect]
     Indication: ANTICOAGULANT THERAPY
     Route: 048
     Dates: start: 20120919, end: 20121022
  2. ASPIRIN CARDIO [Interacting]
     Indication: PRODUCT USED FOR UNKNOWN INDICATION
     Route: 065
     Dates: start: 1992
  3. FLUDEX [Concomitant]
     Route: 065
  4. PANTOPRAZOLE [Concomitant]
     Route: 065
  5. CONCOR [Concomitant]
     Route: 065
     Dates: start: 20120720

REACTIONS (3)
  - Anaemia [Recovered/Resolved]
  - Angina pectoris [Unknown]
  - Drug interaction [Unknown]
